FAERS Safety Report 24646947 (Version 1)
Quarter: 2024Q4

REPORT INFORMATION
  Report Type: Spontaneous
  Country: US (occurrence: US)
  Receive Date: 20241121
  Receipt Date: 20241121
  Transmission Date: 20250115
  Serious: No
  Sender: MISSION PHARMACAL COMPANY
  Company Number: US-Mission Pharmacal Company-2165560

PATIENT
  Age: 73 Year
  Sex: Female

DRUGS (1)
  1. THIOLA [Suspect]
     Active Substance: TIOPRONIN
     Indication: Cystinuria
     Dates: start: 20141030

REACTIONS (5)
  - Proteinuria [Unknown]
  - Hydronephrosis [Unknown]
  - Drug ineffective [Unknown]
  - Drug ineffective [Unknown]
  - Flank pain [Unknown]
